FAERS Safety Report 9087273 (Version 1)
Quarter: 2013Q1

REPORT INFORMATION
  Report Type: Spontaneous
  Country: IT (occurrence: IT)
  Receive Date: 20130217
  Receipt Date: 20130217
  Transmission Date: 20140127
  Serious: Yes (Hospitalization)
  Sender: FDA-Public Use
  Company Number: IT-TEVA-385875ISR

PATIENT
  Age: 63 Year
  Sex: Female

DRUGS (5)
  1. FLUOROURACILE [Suspect]
     Indication: ANAL CANCER
     Dosage: 1800 MILLIGRAM DAILY;
     Route: 042
     Dates: start: 20130123, end: 20130126
  2. MITOMICINA [Concomitant]
     Indication: ANAL CANCER
     Dosage: 18 MILLIGRAM DAILY;
     Route: 042
     Dates: start: 20130123, end: 20130123
  3. NEO-LOTAN PLUS [Concomitant]
     Indication: HYPERTENSION
     Dosage: 1 DOSAGE FORMS DAILY; 50 MG + 12.5 MG
     Route: 048
  4. TENORMIN [Concomitant]
     Indication: HYPERTENSION
     Dosage: 50 MILLIGRAM DAILY;
     Route: 048
  5. CARDURA [Concomitant]
     Indication: HYPERTENSION
     Dosage: 2 MILLIGRAM DAILY;
     Route: 048

REACTIONS (2)
  - Acute myocardial infarction [Recovered/Resolved]
  - Atrial fibrillation [Recovered/Resolved]
